FAERS Safety Report 8276073-5 (Version None)
Quarter: 2012Q2

REPORT INFORMATION
  Report Type: 
  Country: None (occurrence: None)
  Receive Date: 20120405
  Receipt Date: 20120307
  Transmission Date: 20120825
  Serious: No
  Sender: FDA-Public Use
  Company Number: ACO_28565_2011

PATIENT
  Age: 49 Year
  Sex: Female
  Weight: 56.7 kg

DRUGS (10)
  1. VALTREX [Concomitant]
  2. CYMBALTA [Concomitant]
  3. AMPYRA [Suspect]
     Indication: GAIT DISTURBANCE
     Dosage: 10 MG, Q 12 HRS, ORAL
     Route: 048
     Dates: start: 20111216
  4. AMPYRA [Suspect]
     Indication: ASTHENIA
     Dosage: 10 MG, Q 12 HRS, ORAL
     Route: 048
     Dates: start: 20111216
  5. LAMICTAL [Concomitant]
  6. RESTORIL /00054301/ (CHLORMEZANONE) [Concomitant]
  7. TYSABRI [Concomitant]
  8. BETHANECHOL CLORIDE (BETHANECHOL CHLORIDE) [Concomitant]
  9. PROVIGIL [Concomitant]
  10. PREDNISONE TAB [Concomitant]

REACTIONS (2)
  - PROGRESSIVE MULTIFOCAL LEUKOENCEPHALOPATHY [None]
  - NAUSEA [None]
